FAERS Safety Report 8185984-0 (Version None)
Quarter: 2012Q1

REPORT INFORMATION
  Report Type: 
  Country: None (occurrence: None)
  Receive Date: 20120306
  Receipt Date: 20120221
  Transmission Date: 20120608
  Serious: Yes (Other)
  Sender: FDA-Public Use
  Company Number: NZ-AMGEN-NZLSP2011058943

PATIENT
  Age: 73 Year
  Sex: Male

DRUGS (12)
  1. CARVEDILOL [Concomitant]
     Indication: LEFT VENTRICULAR DYSFUNCTION
     Dosage: 12.5 MG, 2X/DAY
     Route: 048
  2. CALCIUM [Concomitant]
     Dosage: UNK
  3. ENBREL [Suspect]
     Indication: RHEUMATOID ARTHRITIS
     Dosage: 50 MG, WEEKLY
     Route: 058
     Dates: start: 20110926, end: 20111101
  4. CHOLECALCIFEROL [Concomitant]
     Dosage: 1.25 MG, MONTHLY
  5. ASPIRIN [Concomitant]
     Indication: LEFT VENTRICULAR DYSFUNCTION
     Dosage: 100 MG, 1X/DAY
     Route: 048
  6. PREDNISONE TAB [Concomitant]
     Indication: RHEUMATOID ARTHRITIS
     Dosage: 8 MG, 1X/DAY
     Route: 048
  7. ALENDRONATE SODIUM [Concomitant]
     Indication: OSTEOPOROSIS
     Dosage: 70 MG, WEEKLY
     Route: 048
  8. CILAZAPRIL [Concomitant]
     Indication: LEFT VENTRICULAR DYSFUNCTION
     Dosage: 0.5 MG, 1X/DAY
     Route: 048
  9. CILAZAPRIL [Concomitant]
     Dosage: 0.5 MG, 2X/DAY
  10. GENISTEIN [Concomitant]
     Dosage: UNK
  11. ARAVA [Concomitant]
     Indication: RHEUMATOID ARTHRITIS
     Dosage: 20 MG, 1X/DAY
     Route: 048
     Dates: end: 20111101
  12. ZINC SULFATE [Concomitant]
     Dosage: UNK

REACTIONS (1)
  - INTERSTITIAL LUNG DISEASE [None]
